FAERS Safety Report 6998516-7 (Version None)
Quarter: 2010Q3

REPORT INFORMATION
  Report Type: 
  Country: None (occurrence: None)
  Receive Date: 20100920
  Receipt Date: 20100318
  Transmission Date: 20110219
  Serious: No
  Sender: FDA-Public Use
  Company Number: US-ASTRAZENECA-2008UW19951

PATIENT
  Age: 495 Month
  Sex: Female
  Weight: 81.6 kg

DRUGS (20)
  1. SEROQUEL [Suspect]
     Indication: DEPRESSION
     Dosage: 25-300MG
     Route: 048
     Dates: start: 20030601, end: 20061201
  2. SEROQUEL [Suspect]
     Indication: ANXIETY
     Dosage: 25-300MG
     Route: 048
     Dates: start: 20030601, end: 20061201
  3. SEROQUEL [Suspect]
     Indication: INSOMNIA
     Dosage: 25-300MG
     Route: 048
     Dates: start: 20030601, end: 20061201
  4. SEROQUEL [Suspect]
     Indication: SLEEP DISORDER
     Dosage: 25-300MG
     Route: 048
     Dates: start: 20030601, end: 20061201
  5. ALPRAZOLAM [Concomitant]
     Dates: start: 20030201
  6. VALTREX [Concomitant]
     Dates: start: 20070101
  7. LAMICTAL [Concomitant]
     Dates: start: 20070601
  8. TRAZODONE HCL [Concomitant]
     Dates: start: 20070101
  9. TRAZODONE HCL [Concomitant]
     Dates: start: 19960801
  10. OMEPRAZOLE [Concomitant]
     Dates: start: 20070801
  11. CRESTOR [Concomitant]
     Dates: start: 20050301
  12. GEMFIBROZIL [Concomitant]
     Dates: start: 20030317
  13. GEMFIBROZIL [Concomitant]
     Dates: start: 20050301
  14. EFFEXOR [Concomitant]
     Dates: start: 20070601
  15. ZOLOFT [Concomitant]
     Dates: start: 19960801
  16. TRICOR [Concomitant]
  17. XANAX [Concomitant]
     Dates: start: 19960801
  18. BEXTRA [Concomitant]
     Dates: start: 20030101
  19. WELLBUTRIN XL [Concomitant]
  20. ELAVIL [Concomitant]

REACTIONS (3)
  - DIABETES MELLITUS INADEQUATE CONTROL [None]
  - OBESITY [None]
  - TYPE 2 DIABETES MELLITUS [None]
